FAERS Safety Report 23727549 (Version 1)
Quarter: 2024Q2

REPORT INFORMATION
  Report Type: Spontaneous
  Country: CA (occurrence: CA)
  Receive Date: 20240410
  Receipt Date: 20240410
  Transmission Date: 20240716
  Serious: Yes (Other)
  Sender: FDA-Public Use
  Company Number: CA-MYLANLABS-2024M1030315

PATIENT
  Age: 41 Year
  Sex: Female

DRUGS (8)
  1. CLINDAMYCIN [Suspect]
     Active Substance: CLINDAMYCIN
     Indication: Dermatitis papillaris capillitii
     Dosage: UNK
     Route: 061
  2. CLOBETASOL [Suspect]
     Active Substance: CLOBETASOL
     Indication: Dermatitis papillaris capillitii
     Dosage: UNK
     Route: 061
  3. FUSIDIC ACID [Suspect]
     Active Substance: FUSIDIC ACID
     Indication: Dermatitis papillaris capillitii
     Dosage: UNK
     Route: 061
  4. BETAMETHASONE\SALICYLIC ACID [Suspect]
     Active Substance: BETAMETHASONE\SALICYLIC ACID
     Indication: Dermatitis papillaris capillitii
     Dosage: UNK
     Route: 061
  5. TRIAMCINOLONE [Suspect]
     Active Substance: TRIAMCINOLONE
     Indication: Dermatitis papillaris capillitii
     Dosage: UNK
     Route: 026
  6. MINOCYCLINE [Suspect]
     Active Substance: MINOCYCLINE HYDROCHLORIDE
     Indication: Dermatitis papillaris capillitii
     Dosage: UNK
     Route: 065
  7. DOXYCYCLINE [Suspect]
     Active Substance: DOXYCYCLINE
     Indication: Dermatitis papillaris capillitii
     Dosage: UNK,SYSTEMIC
     Route: 065
  8. METHOTREXATE [Suspect]
     Active Substance: METHOTREXATE
     Indication: Dermatitis atopic
     Dosage: UNK
     Route: 065

REACTIONS (2)
  - Drug ineffective [Unknown]
  - Off label use [Unknown]
